FAERS Safety Report 23130838 (Version 3)
Quarter: 2024Q2

REPORT INFORMATION
  Report Type: Spontaneous
  Country: AU (occurrence: AU)
  Receive Date: 20231031
  Receipt Date: 20240517
  Transmission Date: 20240716
  Serious: Yes (Hospitalization, Other)
  Sender: FDA-Public Use
  Company Number: AU-BRISTOL-MYERS SQUIBB COMPANY-2023-150334

PATIENT
  Age: 79 Year
  Sex: Male

DRUGS (19)
  1. DASATINIB [Suspect]
     Active Substance: DASATINIB
     Indication: Product used for unknown indication
  2. METOPROLOL TARTRATE [Suspect]
     Active Substance: METOPROLOL TARTRATE
     Indication: Product used for unknown indication
  3. AMLODIPINE BESYLATE [Suspect]
     Active Substance: AMLODIPINE BESYLATE
     Indication: Product used for unknown indication
  4. ATORVASTATIN [Suspect]
     Active Substance: ATORVASTATIN
     Indication: Product used for unknown indication
  5. IMATINIB [Suspect]
     Active Substance: IMATINIB
     Indication: Chronic myeloid leukaemia
     Dates: start: 202010, end: 202105
  6. ISOSORBIDE MONONITRATE [Suspect]
     Active Substance: ISOSORBIDE MONONITRATE
     Indication: Product used for unknown indication
  7. LEUPROLIDE ACETATE [Suspect]
     Active Substance: ISOPROPYL ALCOHOL\LEUPROLIDE ACETATE
     Indication: Product used for unknown indication
  8. NILOTINIB HYDROCHLORIDE MONOHYDRATE [Suspect]
     Active Substance: NILOTINIB HYDROCHLORIDE MONOHYDRATE
     Indication: Chronic myeloid leukaemia
     Dates: end: 202202
  9. NILOTINIB HYDROCHLORIDE MONOHYDRATE [Suspect]
     Active Substance: NILOTINIB HYDROCHLORIDE MONOHYDRATE
     Dates: start: 202305
  10. NILOTINIB HYDROCHLORIDE MONOHYDRATE [Suspect]
     Active Substance: NILOTINIB HYDROCHLORIDE MONOHYDRATE
  11. PANTOPRAZOLE SODIUM [Suspect]
     Active Substance: PANTOPRAZOLE SODIUM
     Indication: Product used for unknown indication
  12. PERINDOPRIL [Suspect]
     Active Substance: PERINDOPRIL
     Indication: Product used for unknown indication
  13. RAMIPRIL [Suspect]
     Active Substance: RAMIPRIL
     Indication: Product used for unknown indication
  14. ASPIRIN [Concomitant]
     Active Substance: ASPIRIN
  15. CALCIUM [Concomitant]
     Active Substance: CALCIUM
  16. FUROSEMIDE [Concomitant]
     Active Substance: FUROSEMIDE
  17. GEMFIBROZIL [Concomitant]
     Active Substance: GEMFIBROZIL
  18. CLOPIDOGREL [Concomitant]
     Active Substance: CLOPIDOGREL BISULFATE
  19. VITAMINS [Concomitant]
     Active Substance: VITAMINS

REACTIONS (14)
  - Chronic myeloid leukaemia [Unknown]
  - Cytomegalovirus colitis [Unknown]
  - Fatigue [Unknown]
  - Leukocytosis [Unknown]
  - Pleural effusion [Unknown]
  - Rectal haemorrhage [Unknown]
  - Renal failure [Unknown]
  - Klebsiella urinary tract infection [Unknown]
  - Prescribed overdose [Unknown]
  - Supraventricular tachycardia [Unknown]
  - Physical deconditioning [Unknown]
  - Polyp [Unknown]
  - Hypervolaemia [Unknown]
  - Urinary tract infection pseudomonal [Unknown]

NARRATIVE: CASE EVENT DATE: 20220201
